FAERS Safety Report 8472767-7 (Version None)
Quarter: 2012Q2

REPORT INFORMATION
  Report Type: 
  Country: None (occurrence: None)
  Receive Date: 20120627
  Receipt Date: 20120615
  Transmission Date: 20120825
  Serious: Yes (Hospitalization)
  Sender: FDA-Public Use
  Company Number: JP-VERTEX PHARMACEUTICALS INC.-AE-2012-009134

PATIENT
  Age: 57 Year
  Sex: Male

DRUGS (5)
  1. TELAVIC (TELAPREVIR) [Suspect]
     Route: 048
     Dates: start: 20120417
  2. TELAVIC (TELAPREVIR) [Suspect]
     Indication: HEPATITIS C
     Route: 048
     Dates: start: 20120410, end: 20120416
  3. RIBAVIRIN [Concomitant]
     Route: 048
     Dates: start: 20120508, end: 20120514
  4. PEG-INTRON [Concomitant]
     Indication: HEPATITIS C
     Route: 058
     Dates: start: 20120410
  5. RIBAVIRIN [Concomitant]
     Indication: HEPATITIS C
     Route: 048
     Dates: start: 20120410, end: 20120507

REACTIONS (1)
  - RASH [None]
